FAERS Safety Report 5149542-4 (Version None)
Quarter: 2006Q4

REPORT INFORMATION
  Report Type: 
  Country: None (occurrence: None)
  Receive Date: 20061113
  Receipt Date: 20060406
  Transmission Date: 20070319
  Serious: No
  Sender: FDA-Public Use
  Company Number: US-GLAXOSMITHKLINE-A0600753A

PATIENT
  Age: 79 Year
  Sex: Male

DRUGS (6)
  1. COREG [Suspect]
     Indication: DRUG USE FOR UNKNOWN INDICATION
     Dosage: 12.5MG TWICE PER DAY
     Route: 048
  2. ZOCOR [Concomitant]
  3. LISINOPRIL [Concomitant]
  4. FLOMAX [Concomitant]
  5. ASPIRIN [Concomitant]
  6. UROXATRAL [Concomitant]

REACTIONS (1)
  - MYALGIA [None]
